FAERS Safety Report 9910352 (Version 2)
Quarter: 2014Q1

REPORT INFORMATION
  Report Type: Report from Study
  Country: GB (occurrence: GB)
  Receive Date: 20140219
  Receipt Date: 20140219
  Transmission Date: 20141002
  Serious: Yes (Death, Hospitalization)
  Sender: FDA-Public Use
  Company Number: GB-PFIZER INC-2014020833

PATIENT
  Age: 92 Year
  Sex: Male

DRUGS (8)
  1. IBUPROFEN [Suspect]
     Indication: OSTEOARTHRITIS
     Dosage: 400 MG, UNK
     Route: 048
     Dates: start: 20110613, end: 20110913
  2. PARACETAMOL [Concomitant]
     Dosage: 1000 MG, UNK
  3. FINASTERIDE [Concomitant]
     Dosage: 5 MG, 1X/DAY
     Dates: start: 20080211
  4. ASPIRIN [Concomitant]
     Dosage: 75 MG, 1X/DAY
     Dates: start: 20111005
  5. CLOPIDOGREL [Concomitant]
     Dosage: 75 MG, 1X/DAY
     Dates: start: 20120126
  6. ISOSORBIDE MONONITRATE [Concomitant]
     Dosage: 60 MG, 1X/DAY
     Dates: start: 20130420
  7. GTN [Concomitant]
     Dosage: 400 UG, UNK
     Dates: start: 20120724
  8. FLUOXETINE [Concomitant]
     Dosage: 20 MG, 1X/DAY
     Dates: start: 20130708

REACTIONS (2)
  - Asthenia [Fatal]
  - Abdominal pain [Fatal]
